FAERS Safety Report 11151879 (Version 1)
Quarter: 2015Q2

REPORT INFORMATION
  Report Type: Spontaneous
  Country: US (occurrence: US)
  Receive Date: 20150601
  Receipt Date: 20150601
  Transmission Date: 20150821
  Serious: No
  Sender: FDA-Public Use
  Company Number: US-PFIZER INC-2015180202

PATIENT

DRUGS (1)
  1. EMBEDA [Suspect]
     Active Substance: MORPHINE SULFATE\NALTREXONE HYDROCHLORIDE
     Dosage: 30MG/1.2MG
     Dates: start: 20150512

REACTIONS (5)
  - Feeling abnormal [Unknown]
  - Drug withdrawal syndrome [Unknown]
  - Medication residue present [Unknown]
  - Impaired work ability [Unknown]
  - Drug ineffective [Unknown]
